FAERS Safety Report 6276013-4 (Version None)
Quarter: 2009Q3

REPORT INFORMATION
  Report Type: 
  Country: None (occurrence: None)
  Receive Date: 20090720
  Receipt Date: 20090630
  Transmission Date: 20100115
  Serious: Yes (Hospitalization, Other)
  Sender: FDA-Public Use
  Company Number: 000915

PATIENT
  Sex: Male

DRUGS (3)
  1. VIMPAT [Suspect]
     Dosage: (150 MG QD)
     Dates: start: 20090108, end: 20090408
  2. CARBAMAZEPINE [Concomitant]
  3. LAMOTRIGINE [Concomitant]

REACTIONS (2)
  - HEMIPARESIS [None]
  - UNEVALUABLE EVENT [None]
